FAERS Safety Report 6128771-7 (Version None)
Quarter: 2009Q1

REPORT INFORMATION
  Report Type: 
  Country: None (occurrence: None)
  Receive Date: 20090320
  Receipt Date: 20090304
  Transmission Date: 20090719
  Serious: Yes (Life-Threatening)
  Sender: FDA-Public Use
  Company Number: DSA_33347_2009

PATIENT
  Sex: Male

DRUGS (7)
  1. MONO-TILDIEM (MONO-TILDIEM - DILTIAZEM) 300 MG (NOT SPECIFIED) [Suspect]
     Indication: DRUG USE FOR UNKNOWN INDICATION
     Dosage: (DF ORAL)
     Route: 048
     Dates: start: 20040101, end: 20081105
  2. CORDARONE [Suspect]
     Indication: ATRIAL FIBRILLATION
     Dosage: (DF)
     Dates: start: 20081017, end: 20081105
  3. ALLOPURINOL [Suspect]
     Indication: DRUG USE FOR UNKNOWN INDICATION
     Dosage: (DF ORAL)
     Route: 048
     Dates: start: 20040101, end: 20081105
  4. PREVISCAN /00789001/ (PREVISCAN FLUINDIONE) 20 MG (NOT SPECIFIED) [Suspect]
     Indication: DRUG USE FOR UNKNOWN INDICATION
     Dosage: (DF ORAL)
     Route: 048
     Dates: start: 20040101, end: 20081105
  5. TOLEXINE /00055701/ (TOLEXINE DOXYCYCLINE) (NOT SPECIFIED) [Suspect]
     Indication: BRONCHOSPASM
     Dosage: (DF ORAL)
     Route: 048
     Dates: start: 20081022, end: 20081105
  6. EUPHON (EUPHON - ERYSIUM + CODEINE) (NOT SPECIFIED) [Suspect]
     Indication: BRONCHOSPASM
     Dosage: (DF ORAL)
     Route: 048
     Dates: start: 20081022, end: 20081104
  7. SYMBICORT [Concomitant]

REACTIONS (3)
  - ASTHMA [None]
  - ATRIAL FIBRILLATION [None]
  - DRUG RASH WITH EOSINOPHILIA AND SYSTEMIC SYMPTOMS [None]
